FAERS Safety Report 23777359 (Version 1)
Quarter: 2024Q2

REPORT INFORMATION
  Report Type: Spontaneous
  Country: US (occurrence: None)
  Receive Date: 20240423
  Receipt Date: 20240423
  Transmission Date: 20240716
  Serious: No
  Sender: FDA-Public Use
  Company Number: None

PATIENT
  Age: 71 Year
  Sex: Female
  Weight: 98.43 kg

DRUGS (7)
  1. OZEMPIC [Suspect]
     Active Substance: SEMAGLUTIDE
     Indication: Diabetes mellitus
     Dosage: FREQUENCY : WEEKLY;?
     Route: 042
     Dates: start: 20240228, end: 20240403
  2. GABAPENTIN [Concomitant]
  3. PRAVASTATIN [Concomitant]
  4. METFORMIN [Concomitant]
  5. JANUVIC [Concomitant]
  6. OLMESARTAN [Concomitant]
  7. NORVASC [Concomitant]

REACTIONS (5)
  - Neck pain [None]
  - Arthralgia [None]
  - Myalgia [None]
  - Gait disturbance [None]
  - Therapy cessation [None]

NARRATIVE: CASE EVENT DATE: 20240229
